FAERS Safety Report 5691302-X (Version None)
Quarter: 2008Q2

REPORT INFORMATION
  Report Type: 
  Country: None (occurrence: None)
  Receive Date: 20080402
  Receipt Date: 20080327
  Transmission Date: 20081010
  Serious: Yes (Death, Hospitalization)
  Sender: FDA-Public Use
  Company Number: FR-BRISTOL-MYERS SQUIBB COMPANY-14128474

PATIENT
  Age: 86 Year
  Sex: Male

DRUGS (3)
  1. ZERIT [Suspect]
     Indication: HIV TEST POSITIVE
     Dates: start: 19970101
  2. EPIVIR [Suspect]
     Indication: HIV TEST POSITIVE
     Dates: start: 19970101
  3. KARDEGIC [Concomitant]

REACTIONS (6)
  - CARDIOMYOPATHY [None]
  - CHOLESTASIS [None]
  - DEATH [None]
  - HEPATIC FAILURE [None]
  - LACTIC ACIDOSIS [None]
  - RENAL FAILURE ACUTE [None]
